FAERS Safety Report 7294239-8 (Version None)
Quarter: 2011Q1

REPORT INFORMATION
  Report Type: 
  Country: None (occurrence: None)
  Receive Date: 20110215
  Receipt Date: 20110207
  Transmission Date: 20110831
  Serious: Yes (Hospitalization)
  Sender: FDA-Public Use
  Company Number: US-GILEAD-2011-0035973

PATIENT
  Sex: Female

DRUGS (4)
  1. ADCIRCA [Concomitant]
  2. COREG [Concomitant]
  3. LETAIRIS [Suspect]
     Indication: PULMONARY HYPERTENSION
     Route: 048
     Dates: start: 20100823
  4. COUMADIN [Concomitant]

REACTIONS (1)
  - PULMONARY ARTERIAL HYPERTENSION [None]
